FAERS Safety Report 24710864 (Version 2)
Quarter: 2025Q1

REPORT INFORMATION
  Report Type: Report from Study
  Country: US (occurrence: US)
  Receive Date: 20241209
  Receipt Date: 20250210
  Transmission Date: 20250409
  Serious: Yes (Other)
  Sender: ABBVIE
  Company Number: US-ABBVIE-6034535

PATIENT
  Age: 56 Year
  Weight: 83.914 kg

DRUGS (1)
  1. ARMOUR THYROID [Suspect]
     Active Substance: THYROID, PORCINE
     Indication: Autoimmune thyroiditis
     Dosage: FORM STRENGTH : 120 MILLIGRAM?START DATE TEXT: 10-15 YEARS
     Route: 048

REACTIONS (4)
  - Medical procedure [Unknown]
  - Neoplasm [Unknown]
  - Procedural pain [Not Recovered/Not Resolved]
  - Muscle tightness [Not Recovered/Not Resolved]

NARRATIVE: CASE EVENT DATE: 20190101
